FAERS Safety Report 8796307 (Version 1)
Quarter: 2012Q4

REPORT INFORMATION
  Report Type: 
  Country: JP (occurrence: JP)
  Receive Date: 20120919
  Receipt Date: 20120919
  Transmission Date: 20130627
  Serious: Yes (Hospitalization)
  Sender: FDA-Public Use
  Company Number: JP-ALEXION PHARMACEUTICALS INC.-A201201727

PATIENT
  Age: 57 Year
  Sex: Female

DRUGS (4)
  1. SOLIRIS 300MG [Suspect]
     Indication: PAROXYSMAL NOCTURNAL HAEMOGLOBINURIA
     Dosage: 900 mg, q2w
     Route: 042
  2. SOLIRIS 300MG [Suspect]
     Indication: APLASTIC ANAEMIA
  3. PREDONINE [Concomitant]
     Dosage: 5 mg, qd
  4. BLOOD TRANSFUSION, AUXILIARY PRODUCTS [Concomitant]
     Indication: TRANSFUSION

REACTIONS (2)
  - Sudden hearing loss [Recovered/Resolved]
  - Haemolysis [Recovered/Resolved]
